FAERS Safety Report 20829336 (Version 1)
Quarter: 2022Q2

REPORT INFORMATION
  Report Type: Spontaneous
  Country: US (occurrence: US)
  Receive Date: 20220513
  Receipt Date: 20220513
  Transmission Date: 20220721
  Serious: No
  Sender: FDA-Public Use
  Company Number: US-PFIZER INC-202200390766

PATIENT
  Age: 16 Year
  Sex: Male

DRUGS (1)
  1. XELJANZ [Suspect]
     Active Substance: TOFACITINIB CITRATE
     Dosage: 15 MG, DAILY (XELJANZ 5MG EVENING DOSE, 10MG MORNING DOSE)
     Dates: start: 20220303, end: 20220309

REACTIONS (3)
  - Off label use [Unknown]
  - Off label use [Unknown]
  - Full blood count abnormal [Unknown]

NARRATIVE: CASE EVENT DATE: 20220303
